FAERS Safety Report 8188375-1 (Version None)
Quarter: 2012Q1

REPORT INFORMATION
  Report Type: 
  Country: None (occurrence: None)
  Receive Date: 20120306
  Receipt Date: 20120223
  Transmission Date: 20120608
  Serious: Yes (Hospitalization, Other)
  Sender: FDA-Public Use
  Company Number: PHHY2012CH016420

PATIENT
  Age: 56 Year
  Sex: Male

DRUGS (13)
  1. CARDURA CR [Concomitant]
     Dosage: 8 MG, UNK
     Route: 048
  2. ASPIRIN [Concomitant]
     Dosage: 100 MG, UNK
  3. TORSEMIDE [Concomitant]
     Dosage: 10 MG, UNK
  4. PREDNISONE TAB [Concomitant]
     Indication: GOUT
     Dosage: 30 MG, UNK
     Route: 048
  5. SANDIMMUNE [Suspect]
     Indication: RENAL TRANSPLANT
     Dosage: 125 MG, BID
     Route: 048
     Dates: start: 19940101, end: 20120101
  6. COLCHICINE [Suspect]
     Dosage: 1 OR 2 MG
     Route: 048
  7. ENOXAPARIN SODIUM [Concomitant]
     Dosage: 100 MG, UNK
     Route: 048
     Dates: end: 20120123
  8. LERCANIDIPINE [Concomitant]
     Dosage: 10 MG, BID
     Route: 048
  9. NITRODERM [Concomitant]
     Dosage: 5 MG, UNK
     Route: 003
  10. TARCEVA [Suspect]
     Dosage: 150 MG, UNK
     Route: 048
     Dates: start: 20111001, end: 20120123
  11. METOPROLOL TARTRATE AND HYDROCHLOROTHIAZIDE [Concomitant]
     Dosage: 100 MG, UNK
     Route: 048
  12. CALCIMAGON-D3 [Concomitant]
     Dosage: 1 IU, UNK
  13. AZATHIOPRINE SODIUM [Concomitant]
     Dosage: 50 MG, UNK
     Dates: start: 19940101

REACTIONS (12)
  - URINE OUTPUT DECREASED [None]
  - HEPATIC ENZYME INCREASED [None]
  - RENAL TUBULAR NECROSIS [None]
  - LUNG ADENOCARCINOMA [None]
  - ACUTE PRERENAL FAILURE [None]
  - TOXICITY TO VARIOUS AGENTS [None]
  - THROMBOTIC MICROANGIOPATHY [None]
  - ACNE [None]
  - GOUT [None]
  - DIARRHOEA [None]
  - FATIGUE [None]
  - HAEMOGLOBIN DECREASED [None]
